FAERS Safety Report 5777178-0 (Version None)
Quarter: 2008Q2

REPORT INFORMATION
  Report Type: 
  Country: None (occurrence: None)
  Receive Date: 20080618
  Receipt Date: 20080609
  Transmission Date: 20081010
  Serious: Yes (Other)
  Sender: FDA-Public Use
  Company Number: US-KINGPHARMUSA00001-K200800652

PATIENT
  Age: 29 Year
  Sex: Female

DRUGS (2)
  1. ATROPEN AUTO-INJECTOR [Suspect]
     Indication: SUICIDAL BEHAVIOUR
     Dosage: 2 MG, TID
     Route: 030
  2. MOBIC [Suspect]
     Indication: SUICIDAL BEHAVIOUR
     Dosage: 30 U, SINGLE
     Route: 048

REACTIONS (11)
  - AGITATION [None]
  - ANTICHOLINERGIC SYNDROME [None]
  - ANXIETY [None]
  - BLADDER DISTENSION [None]
  - BLOOD ETHANOL INCREASED [None]
  - DRY SKIN [None]
  - INTENTIONAL DRUG MISUSE [None]
  - MUCOUS MEMBRANE DISORDER [None]
  - MYDRIASIS [None]
  - SINUS TACHYCARDIA [None]
  - URINARY RETENTION [None]
